FAERS Safety Report 16200626 (Version 1)
Quarter: 2019Q2

REPORT INFORMATION
  Report Type: Spontaneous
  Country: US (occurrence: US)
  Receive Date: 20190416
  Receipt Date: 20190416
  Transmission Date: 20190711
  Serious: Yes (Other)
  Sender: FDA-Public Use
  Company Number: US-CIPLA LTD.-2019US02039

PATIENT

DRUGS (7)
  1. ESCITALOPRAM [Suspect]
     Active Substance: ESCITALOPRAM OXALATE
     Indication: DELIRIUM
     Dosage: UNK
     Route: 065
  2. LORAZEPAM. [Suspect]
     Active Substance: LORAZEPAM
     Indication: DELIRIUM
     Dosage: UNK
     Route: 065
  3. LORAZEPAM. [Suspect]
     Active Substance: LORAZEPAM
     Dosage: UNK, LOW DOSE
     Route: 065
  4. OLANZAPINE. [Suspect]
     Active Substance: OLANZAPINE
     Indication: DELIRIUM
     Dosage: UNK
     Route: 065
  5. GABAPENTIN. [Suspect]
     Active Substance: GABAPENTIN
     Indication: DELIRIUM
     Dosage: UNK
     Route: 065
  6. MIRTAZAPINE. [Suspect]
     Active Substance: MIRTAZAPINE
     Indication: DELIRIUM
     Dosage: UNK
     Route: 065
  7. TRAZODONE [Suspect]
     Active Substance: TRAZODONE HYDROCHLORIDE
     Indication: DELIRIUM
     Dosage: UNK
     Route: 065

REACTIONS (1)
  - Akathisia [Recovering/Resolving]
